FAERS Safety Report 4879581-X (Version None)
Quarter: 2006Q1

REPORT INFORMATION
  Report Type: 
  Country: None (occurrence: None)
  Receive Date: 20060111
  Receipt Date: 20051220
  Transmission Date: 20060701
  Serious: Yes (Hospitalization)
  Sender: FDA-Public Use
  Company Number: RO200511001208

PATIENT
  Age: 7 Year
  Sex: Male
  Weight: 25 kg

DRUGS (2)
  1. STRATTERA [Suspect]
     Indication: ATTENTION DEFICIT/HYPERACTIVITY DISORDER
     Dosage: 10 MG DAILY (1/D) ORAL
     Route: 048
     Dates: start: 20051006, end: 20051110
  2. TRANXENE [Concomitant]

REACTIONS (7)
  - ABDOMINAL PAIN UPPER [None]
  - ELECTROMYOGRAM ABNORMAL [None]
  - HAEMOGLOBIN DECREASED [None]
  - LIPIDS DECREASED [None]
  - MUSCULAR DYSTROPHY [None]
  - MYOPATHY [None]
  - URINE COPPER INCREASED [None]
